FAERS Safety Report 25561452 (Version 2)
Quarter: 2025Q3

REPORT INFORMATION
  Report Type: Spontaneous
  Country: JP (occurrence: JP)
  Receive Date: 20250716
  Receipt Date: 20250918
  Transmission Date: 20251020
  Serious: Yes (Other)
  Sender: CHEPLAPHARM
  Company Number: JP-CP_KK-2025JP004161

PATIENT
  Age: 56 Year
  Sex: Male

DRUGS (8)
  1. OLANZAPINE [Suspect]
     Active Substance: OLANZAPINE
     Indication: Prophylaxis of nausea and vomiting
     Dosage: 3 DAYS/COURSE, 5 COURSES IN TOTAL?DAILY DOSE: 5 MILLIGRAM
     Route: 048
     Dates: start: 20250325, end: 20250424
  2. DEXAMETHASONE SODIUM PHOSPHATE [Suspect]
     Active Substance: DEXAMETHASONE SODIUM PHOSPHATE
     Indication: Prophylaxis of nausea and vomiting
     Dosage: 9.9 MILLIGRAM, QD  (ONLY ON THE DAY OF ANTICANCER DRUG ADMINISTRATION): 7 COURSES (WEEKLY CDDP)
     Route: 042
     Dates: start: 20250311, end: 20250422
  3. CISPLATIN [Concomitant]
     Active Substance: CISPLATIN
     Indication: Tongue neoplasm malignant stage unspecified
     Dates: start: 20250311, end: 20250422
  4. NEXIUM [Concomitant]
     Active Substance: ESOMEPRAZOLE MAGNESIUM
     Route: 048
     Dates: start: 20250130
  5. FUDOSTEINE [Concomitant]
     Active Substance: FUDOSTEINE
     Route: 048
     Dates: start: 20250130
  6. ROSUVASTATIN [Concomitant]
     Active Substance: ROSUVASTATIN
     Route: 048
  7. DAPAGLIFLOZIN [Concomitant]
     Active Substance: DAPAGLIFLOZIN
     Route: 048
     Dates: start: 20250212
  8. CALONAL [Concomitant]
     Active Substance: ACETAMINOPHEN
     Route: 048
     Dates: start: 20250130

REACTIONS (6)
  - Altered state of consciousness [Unknown]
  - Intestinal ischaemia [Unknown]
  - Dehydration [Unknown]
  - Hyperglycaemic hyperosmolar nonketotic syndrome [Unknown]
  - Acute kidney injury [Unknown]
  - Contraindicated product administered [Unknown]

NARRATIVE: CASE EVENT DATE: 20250425
